FAERS Safety Report 10590101 (Version 1)
Quarter: 2014Q4

REPORT INFORMATION
  Report Type: Spontaneous
  Country: US (occurrence: None)
  Receive Date: 20141117
  Receipt Date: 20141117
  Transmission Date: 20150529
  Serious: Yes (Life-Threatening, Hospitalization, Other)
  Sender: FDA-Public Use
  Company Number: None

PATIENT
  Age: 34 Year
  Sex: Female
  Weight: 48.99 kg

DRUGS (1)
  1. LEVONORGESTRAL AND ETHINYL ESTRADIOL .15-.03MG LUPIN [Suspect]
     Active Substance: ETHINYL ESTRADIOL\LEVONORGESTREL
     Indication: CONTRACEPTION
     Dosage: 1 PILL  ONE TIME DOSE  TAKEN BY MOUTH
     Route: 048

REACTIONS (6)
  - Vomiting [None]
  - Pain [None]
  - Internal haemorrhage [None]
  - Computerised tomogram abnormal [None]
  - Back disorder [None]
  - Renal disorder [None]

NARRATIVE: CASE EVENT DATE: 20140720
